FAERS Safety Report 11633139 (Version 2)
Quarter: 2015Q4

REPORT INFORMATION
  Report Type: Spontaneous
  Country: IT (occurrence: IT)
  Receive Date: 20151015
  Receipt Date: 20151023
  Transmission Date: 20160304
  Serious: Yes (Hospitalization)
  Sender: FDA-Public Use
  Company Number: IT-SA-2015SA160735

PATIENT
  Age: 77 Year
  Sex: Male

DRUGS (3)
  1. CARDIOASPIRIN [Interacting]
     Active Substance: ASPIRIN
     Route: 065
     Dates: start: 20140401
  2. COUMADIN [Interacting]
     Active Substance: WARFARIN SODIUM
     Route: 065
     Dates: start: 20140901
  3. PLAVIX [Suspect]
     Active Substance: CLOPIDOGREL BISULFATE
     Route: 065
     Dates: start: 20140401

REACTIONS (2)
  - Drug interaction [Unknown]
  - Dysuria [Recovering/Resolving]

NARRATIVE: CASE EVENT DATE: 20150906
